FAERS Safety Report 9365289 (Version 2)
Quarter: 2013Q3

REPORT INFORMATION
  Report Type: Spontaneous
  Country: DE (occurrence: DE)
  Receive Date: 20130625
  Receipt Date: 20130809
  Transmission Date: 20140515
  Serious: Yes (Hospitalization)
  Sender: FDA-Public Use
  Company Number: DE-009507513-1306DEU010673

PATIENT
  Age: 40 Year
  Sex: Female

DRUGS (2)
  1. EMEND [Suspect]
     Indication: BREAST CANCER
     Dosage: 125 MG, QD
     Route: 048
  2. EMEND [Suspect]
     Indication: BREAST CANCER
     Dosage: 80 MG, QD
     Route: 048

REACTIONS (4)
  - Local swelling [Recovered/Resolved]
  - Erythema [Recovered/Resolved]
  - Local swelling [Unknown]
  - Erythema [Unknown]
